FAERS Safety Report 21543776 (Version 2)
Quarter: 2023Q1

REPORT INFORMATION
  Report Type: Spontaneous
  Country: US (occurrence: US)
  Receive Date: 20221102
  Receipt Date: 20230102
  Transmission Date: 20230417
  Serious: No
  Sender: FDA-Public Use
  Company Number: US-TEVA-2022-US-2817438

PATIENT
  Sex: Female

DRUGS (1)
  1. QNASL [Suspect]
     Active Substance: BECLOMETHASONE DIPROPIONATE
     Indication: Product used for unknown indication
     Dosage: NASAL AEROSOL, 80 MCG
     Route: 065

REACTIONS (4)
  - Nasal dryness [Recovered/Resolved]
  - Device delivery system issue [Unknown]
  - Device malfunction [Unknown]
  - Device failure [Unknown]
